FAERS Safety Report 12244819 (Version 25)
Quarter: 2019Q1

REPORT INFORMATION
  Report Type: Report from Study
  Country: CA (occurrence: CA)
  Receive Date: 20160407
  Receipt Date: 20190201
  Transmission Date: 20190417
  Serious: Yes (Hospitalization, Other)
  Sender: FDA-Public Use
  Company Number: CA-ROCHE-707466

PATIENT
  Age: 46 Year
  Sex: Female
  Weight: 43.13 kg

DRUGS (28)
  1. OMEPRAZOLE. [Concomitant]
     Active Substance: OMEPRAZOLE
  2. METHYLPREDNISOLONE. [Concomitant]
     Active Substance: METHYLPREDNISOLONE
     Indication: PREMEDICATION
     Route: 042
     Dates: start: 20100520
  3. FORTEO [Concomitant]
     Active Substance: TERIPARATIDE
  4. DIDROCAL [Concomitant]
     Active Substance: CALCIUM CARBONATE\ETIDRONATE DISODIUM
  5. SPIRIVA [Concomitant]
     Active Substance: TIOTROPIUM BROMIDE MONOHYDRATE
  6. PREGABALIN. [Suspect]
     Active Substance: PREGABALIN
     Route: 065
     Dates: start: 20170428
  7. PREDNISONE. [Concomitant]
     Active Substance: PREDNISONE
  8. LYRICA [Concomitant]
     Active Substance: PREGABALIN
  9. BENADRYL [Suspect]
     Active Substance: DIPHENHYDRAMINE HYDROCHLORIDE
     Route: 048
     Dates: start: 20140716
  10. ARTHROTEC [Concomitant]
     Active Substance: DICLOFENAC SODIUM\MISOPROSTOL
  11. TYLENOL [Concomitant]
     Active Substance: ACETAMINOPHEN
  12. PROPRANOLOL [Concomitant]
     Active Substance: PROPRANOLOL HYDROCHLORIDE
  13. CIPRALEX [Concomitant]
     Active Substance: ESCITALOPRAM OXALATE
  14. MORPHINE [Concomitant]
     Active Substance: MORPHINE
  15. HYDROMORPH CONTIN [Concomitant]
     Active Substance: HYDROMORPHONE
  16. AIROMIR [Concomitant]
     Active Substance: ALBUTEROL SULFATE
  17. RITUXAN [Suspect]
     Active Substance: RITUXIMAB
     Indication: RHEUMATOID ARTHRITIS
     Dosage: SECOND INFUSION CANCELLED, LAST INFUSION DATE: 09-MAY-2012 ? PREVIOUS RITUXIMAB RECEIVED ON 03/MAY/2
     Route: 042
  18. ACETAMINOPHEN. [Concomitant]
     Active Substance: ACETAMINOPHEN
     Indication: PREMEDICATION
     Route: 048
     Dates: start: 20100520, end: 20140716
  19. TUMS [Concomitant]
     Active Substance: CALCIUM CARBONATE
  20. PREDNISONE. [Concomitant]
     Active Substance: PREDNISONE
  21. METOPROLOL. [Concomitant]
     Active Substance: METOPROLOL
  22. BENADRYL [Suspect]
     Active Substance: DIPHENHYDRAMINE HYDROCHLORIDE
     Indication: PREMEDICATION
     Route: 048
     Dates: start: 20100520, end: 20140702
  23. PREGABALIN. [Suspect]
     Active Substance: PREGABALIN
     Indication: PRODUCT USED FOR UNKNOWN INDICATION
     Route: 065
  24. LORAZEPAM. [Concomitant]
     Active Substance: LORAZEPAM
  25. GABAPENTIN. [Concomitant]
     Active Substance: GABAPENTIN
  26. SENOKOT [Concomitant]
     Active Substance: SENNOSIDES
  27. ALENDRONATE [Concomitant]
     Active Substance: ALENDRONATE SODIUM
  28. DIAZEPAM. [Concomitant]
     Active Substance: DIAZEPAM

REACTIONS (41)
  - Carpal tunnel syndrome [Recovered/Resolved]
  - Wound infection bacterial [Unknown]
  - Chronic obstructive pulmonary disease [Unknown]
  - Neck pain [Unknown]
  - Feeling of body temperature change [Not Recovered/Not Resolved]
  - Heart rate increased [Unknown]
  - Dehydration [Unknown]
  - Weight decreased [Not Recovered/Not Resolved]
  - Dyspnoea [Recovered/Resolved]
  - Hypertension [Unknown]
  - Gait inability [Unknown]
  - Candida infection [Not Recovered/Not Resolved]
  - Cough [Not Recovered/Not Resolved]
  - Blood electrolytes decreased [Unknown]
  - Oxygen saturation decreased [Unknown]
  - Musculoskeletal pain [Unknown]
  - Diarrhoea [Not Recovered/Not Resolved]
  - Anxiety [Unknown]
  - Influenza [Not Recovered/Not Resolved]
  - Limb injury [Recovered/Resolved]
  - Headache [Recovered/Resolved]
  - Malaise [Unknown]
  - Dizziness [Recovered/Resolved]
  - Headache [Recovered/Resolved]
  - Diarrhoea [Not Recovered/Not Resolved]
  - Asthenia [Not Recovered/Not Resolved]
  - Hypertension [Not Recovered/Not Resolved]
  - Osteoporosis [Not Recovered/Not Resolved]
  - Localised infection [Recovering/Resolving]
  - Blood pressure systolic increased [Recovering/Resolving]
  - Blood pressure increased [Unknown]
  - Dyspnoea [Unknown]
  - Vomiting [Unknown]
  - Chills [Unknown]
  - Infusion related reaction [Unknown]
  - Neck pain [Unknown]
  - Wrist fracture [Recovered/Resolved]
  - Rib fracture [Unknown]
  - Localised infection [Unknown]
  - Nasopharyngitis [Recovering/Resolving]
  - Arthralgia [Unknown]

NARRATIVE: CASE EVENT DATE: 20100602
